FAERS Safety Report 6403787-1 (Version None)
Quarter: 2009Q4

REPORT INFORMATION
  Report Type: 
  Country: None (occurrence: None)
  Receive Date: 20091015
  Receipt Date: 20091015
  Transmission Date: 20100525
  Serious: Yes (Hospitalization)
  Sender: FDA-Public Use
  Company Number: None

PATIENT
  Sex: Female
  Weight: 75 kg

DRUGS (1)
  1. TEMOZOLOMIDE [Suspect]
     Dosage: 135 MG

REACTIONS (2)
  - HAEMATOCRIT DECREASED [None]
  - PLATELET COUNT DECREASED [None]
